FAERS Safety Report 7901794-0 (Version None)
Quarter: 2011Q4

REPORT INFORMATION
  Report Type: 
  Country: None (occurrence: None)
  Receive Date: 20111108
  Receipt Date: 20111027
  Transmission Date: 20120403
  Serious: Yes (Hospitalization, Other)
  Sender: FDA-Public Use
  Company Number: PHHY2011BR95748

PATIENT
  Sex: Female
  Weight: 60 kg

DRUGS (3)
  1. DIOVAN [Suspect]
     Indication: HYPERTENSION
     Dosage: 2 DF (320 MG), BID (ONE IN THE MORNING ONE AT NIGHT)
     Route: 048
  2. ATENOLOL [Concomitant]
     Dosage: 2 DF (50 MG), A DAY
  3. EXFORGE HCT [Suspect]
     Indication: HYPERTENSION
     Dosage: 1 DF(160/5/12.5 MG), BID
     Route: 048
     Dates: start: 20110101

REACTIONS (9)
  - PLATELET COUNT DECREASED [None]
  - HYPERTENSION [None]
  - SYNCOPE [None]
  - HEADACHE [None]
  - MALAISE [None]
  - CHEST DISCOMFORT [None]
  - DYSPNOEA [None]
  - DYSGEUSIA [None]
  - LIP DISCOLOURATION [None]
